FAERS Safety Report 23986049 (Version 1)
Quarter: 2024Q2

REPORT INFORMATION
  Report Type: Spontaneous
  Country: US (occurrence: US)
  Receive Date: 20240618
  Receipt Date: 20240618
  Transmission Date: 20240715
  Serious: No
  Sender: FDA-Public Use
  Company Number: US-BAYER-2024A084200

PATIENT
  Age: 37 Year
  Sex: Female

DRUGS (11)
  1. CIPROFLOXACIN [Suspect]
     Active Substance: CIPROFLOXACIN
     Indication: Product used for unknown indication
     Dosage: UNK
  2. PROZAC [Concomitant]
     Active Substance: FLUOXETINE HYDROCHLORIDE
  3. ABILIFY [Concomitant]
     Active Substance: ARIPIPRAZOLE
  4. DIAZEPAM [Concomitant]
     Active Substance: DIAZEPAM
  5. OXYBUTYNIN [Concomitant]
     Active Substance: OXYBUTYNIN\OXYBUTYNIN CHLORIDE
  6. LISINOPRIL [Concomitant]
     Active Substance: LISINOPRIL
  7. METFORMIN [Concomitant]
     Active Substance: METFORMIN HYDROCHLORIDE
  8. VITAMIN D [Concomitant]
     Active Substance: VITAMIN D NOS
  9. BACLOFEN [Concomitant]
     Active Substance: BACLOFEN
  10. TEM [Concomitant]
  11. TIZANIDINE [Concomitant]
     Active Substance: TIZANIDINE

REACTIONS (1)
  - Drug hypersensitivity [Unknown]
